FAERS Safety Report 6324036-9 (Version None)
Quarter: 2009Q3

REPORT INFORMATION
  Report Type: 
  Country: None (occurrence: None)
  Receive Date: 20090820
  Receipt Date: 20090731
  Transmission Date: 20100115
  Serious: Yes (Death, Other)
  Sender: FDA-Public Use
  Company Number: JPI-P-008180

PATIENT
  Age: 41 Year
  Sex: Female

DRUGS (6)
  1. LUVOX IR (500 MG/ML, TABLETS)            (FLUVOXAMINE MALEATE) [Suspect]
     Indication: DRUG USE FOR UNKNOWN INDICATION
     Dosage: 100 MG , 1 D, ORAL
     Route: 048
     Dates: start: 20081201, end: 20081218
  2. COCAINE [Suspect]
     Indication: DRUG USE FOR UNKNOWN INDICATION
     Dosage: INTRAVENOUS
     Route: 042
     Dates: start: 20081218, end: 20081218
  3. OLANZAPINE [Suspect]
     Indication: HISTRIONIC PERSONALITY DISORDER
     Dosage: 5 MG, 1 D, ORAL
     Route: 048
     Dates: start: 20081129, end: 20081218
  4. TRAZODONE HYDROCHLORIDE [Suspect]
     Indication: DRUG USE FOR UNKNOWN INDICATION
     Dosage: 1000 MG, 1 D, ORAL
     Route: 048
     Dates: end: 20081218
  5. FLURAZEPAM HYDROCHLORIDE [Suspect]
     Indication: DRUG USE FOR UNKNOWN INDICATION
     Dosage: 30 MG, 1 D, ORAL
     Route: 048
  6. TOPIRAMATE [Concomitant]

REACTIONS (1)
  - CARDIO-RESPIRATORY ARREST [None]
